FAERS Safety Report 6085033-4 (Version None)
Quarter: 2009Q1

REPORT INFORMATION
  Report Type: 
  Country: None (occurrence: None)
  Receive Date: 20090220
  Receipt Date: 20090217
  Transmission Date: 20090719
  Serious: Yes (Other)
  Sender: FDA-Public Use
  Company Number: US-AMGEN-KDL334447

PATIENT
  Sex: Female
  Weight: 68.1 kg

DRUGS (2)
  1. PROCRIT [Suspect]
     Indication: ANAEMIA
     Route: 058
     Dates: start: 20080801
  2. VITAMINS [Concomitant]

REACTIONS (1)
  - BLOOD DISORDER [None]
